FAERS Safety Report 15014463 (Version 2)
Quarter: 2018Q2

REPORT INFORMATION
  Report Type: Report from Study
  Country: CA (occurrence: CA)
  Receive Date: 20180615
  Receipt Date: 20180628
  Transmission Date: 20180711
  Serious: Yes (Other)
  Sender: FDA-Public Use
  Company Number: CA-TAKEDA-2017TUS020480

PATIENT
  Age: 22 Year
  Sex: Female

DRUGS (2)
  1. VEDOLIZUMAB [Suspect]
     Active Substance: VEDOLIZUMAB
     Indication: CROHN^S DISEASE
     Dosage: 300 MG, UNK
     Route: 042
     Dates: start: 20170808
  2. VEDOLIZUMAB [Suspect]
     Active Substance: VEDOLIZUMAB
     Dosage: 300 MG, Q4WEEKS
     Route: 042
     Dates: start: 20180215

REACTIONS (5)
  - Off label use [Unknown]
  - Abdominal pain [Recovering/Resolving]
  - Gastrointestinal necrosis [Unknown]
  - Muscle spasms [Unknown]
  - Drug ineffective [Unknown]

NARRATIVE: CASE EVENT DATE: 201708
